FAERS Safety Report 16675550 (Version 1)
Quarter: 2019Q3

REPORT INFORMATION
  Report Type: Report from Study
  Country: US (occurrence: US)
  Receive Date: 20190806
  Receipt Date: 20190806
  Transmission Date: 20191004
  Serious: Yes (Other)
  Sender: FDA-Public Use
  Company Number: US-ACTELION-A-US2018-179692

PATIENT
  Age: 70 Year
  Sex: Female

DRUGS (6)
  1. UPTRAVI [Suspect]
     Active Substance: SELEXIPAG
     Indication: PULMONARY ARTERIAL HYPERTENSION
     Dosage: 800 MCG, BID
     Route: 048
     Dates: start: 20180919
  2. UPTRAVI [Suspect]
     Active Substance: SELEXIPAG
     Dosage: 1000 MCG, BID
     Route: 048
  3. UPTRAVI [Suspect]
     Active Substance: SELEXIPAG
     Dosage: 600 MCG, BID
     Route: 048
     Dates: start: 20180919
  4. LETAIRIS [Concomitant]
     Active Substance: AMBRISENTAN
     Dosage: 10 MG, QD
  5. UPTRAVI [Suspect]
     Active Substance: SELEXIPAG
     Dosage: 200 MCG, BID
     Route: 048
     Dates: start: 20180919
  6. UPTRAVI [Suspect]
     Active Substance: SELEXIPAG
     Dosage: 400 MCG, BID
     Route: 048
     Dates: start: 20180919

REACTIONS (24)
  - Paraesthesia [Unknown]
  - Aspartate aminotransferase increased [Unknown]
  - Toothache [Unknown]
  - Alanine aminotransferase increased [Unknown]
  - Myalgia [Unknown]
  - Renal disorder [Unknown]
  - Memory impairment [Unknown]
  - End stage renal disease [Unknown]
  - Blood count abnormal [Unknown]
  - Pain in extremity [Unknown]
  - Headache [Unknown]
  - Pain [Unknown]
  - Frequent bowel movements [Unknown]
  - Diarrhoea [Unknown]
  - Confusional state [Unknown]
  - Renal impairment [Unknown]
  - Nausea [Unknown]
  - Fatigue [Unknown]
  - Insomnia [Unknown]
  - Scleroderma [Unknown]
  - Dyspnoea [Unknown]
  - Blood bicarbonate decreased [Unknown]
  - Abdominal pain [Unknown]
  - Interstitial lung disease [Unknown]

NARRATIVE: CASE EVENT DATE: 201809
